FAERS Safety Report 25872289 (Version 1)
Quarter: 2025Q4

REPORT INFORMATION
  Report Type: Spontaneous
  Country: US (occurrence: US)
  Receive Date: 20251002
  Receipt Date: 20251002
  Transmission Date: 20260117
  Serious: No
  Sender: TEVA
  Company Number: US-ABBVIE-6474632

PATIENT
  Sex: Male

DRUGS (2)
  1. OXYTROL FOR WOMEN [Suspect]
     Active Substance: OXYBUTYNIN
     Indication: Hypertonic bladder
     Dosage: FIRST ADMIN DATE: 2002 OR 2003
     Route: 062
     Dates: start: 2002
  2. OXYTROL FOR WOMEN [Suspect]
     Active Substance: OXYBUTYNIN
     Indication: Hypertonic bladder
     Route: 065

REACTIONS (5)
  - Application site pain [Recovered/Resolved]
  - Product odour abnormal [Unknown]
  - Product packaging issue [Unknown]
  - Product colour issue [Unknown]
  - Off label use [Unknown]
